FAERS Safety Report 8709026 (Version 2)
Quarter: 2012Q4

REPORT INFORMATION
  Report Type: 
  Country: US (occurrence: US)
  Receive Date: 20120806
  Receipt Date: 20121203
  Transmission Date: 20130627
  Serious: Yes (Death)
  Sender: FDA-Public Use
  Company Number: US-ROCHE-1095900

PATIENT
  Sex: Male
  Weight: 65.92 kg

DRUGS (4)
  1. ZELBORAF [Suspect]
     Indication: MALIGNANT MELANOMA
     Route: 048
     Dates: start: 20120712, end: 20120722
  2. ASPIRIN [Concomitant]
     Route: 048
  3. DECADRON [Concomitant]
     Route: 048
  4. LORAZEPAM [Concomitant]
     Indication: ANXIETY
     Dosage: 0.5 to 1 mg
     Route: 065

REACTIONS (1)
  - Death [Fatal]
